FAERS Safety Report 6008440-4 (Version None)
Quarter: 2008Q4

REPORT INFORMATION
  Report Type: 
  Country: None (occurrence: None)
  Receive Date: 20081217
  Receipt Date: 20081208
  Transmission Date: 20090506
  Serious: Yes (Death, Hospitalization)
  Sender: FDA-Public Use
  Company Number: DE-AMGEN-US206205

PATIENT
  Age: 43 Year
  Sex: Female

DRUGS (10)
  1. ENBREL [Suspect]
     Indication: RHEUMATOID ARTHRITIS
     Route: 058
     Dates: start: 20021201, end: 20060901
  2. PREDNISOLONE [Concomitant]
     Route: 048
     Dates: start: 20000301
  3. OMEPRAZOLE [Concomitant]
     Route: 048
     Dates: start: 20000301
  4. SULFASALAZINE [Concomitant]
     Indication: RHEUMATOID ARTHRITIS
     Dosage: UNKNOWN
     Route: 048
     Dates: end: 20080407
  5. THEOPHYLLINE [Concomitant]
     Route: 065
  6. SERETIDE [Concomitant]
     Dosage: UNKNOWN
     Route: 065
     Dates: start: 20040101
  7. FOLIC ACID [Concomitant]
     Dosage: UNKNOWN
     Route: 065
     Dates: start: 20050101, end: 20060901
  8. METHOTREXATE [Concomitant]
     Indication: RHEUMATOID ARTHRITIS
     Route: 065
     Dates: start: 20000301, end: 20060901
  9. METHOTREXATE [Concomitant]
     Route: 065
     Dates: start: 20070201, end: 20080407
  10. IBUPROFEN [Concomitant]
     Route: 065
     Dates: start: 20000301

REACTIONS (4)
  - BREAST CANCER METASTATIC [None]
  - ILEUS PARALYTIC [None]
  - PNEUMONIA [None]
  - SEPSIS [None]
